FAERS Safety Report 7365792-0 (Version None)
Quarter: 2011Q1

REPORT INFORMATION
  Report Type: 
  Country: None (occurrence: None)
  Receive Date: 20110322
  Receipt Date: 20110308
  Transmission Date: 20110831
  Serious: Yes (Other)
  Sender: FDA-Public Use
  Company Number: CA-JNJFOC-20110304939

PATIENT
  Sex: Female
  Weight: 57 kg

DRUGS (5)
  1. CALCIUM [Concomitant]
     Route: 048
  2. FOLIC ACID [Concomitant]
     Route: 048
  3. REMICADE [Suspect]
     Indication: CROHN'S DISEASE
     Route: 042
  4. IMURAN [Concomitant]
     Dosage: 2.5 TABS DAILY
     Route: 048
  5. VITAMIN D [Concomitant]
     Route: 048

REACTIONS (2)
  - HYPERTENSION [None]
  - CHEST DISCOMFORT [None]
